FAERS Safety Report 11540472 (Version 1)
Quarter: 2015Q3

REPORT INFORMATION
  Report Type: Spontaneous
  Country: US (occurrence: US)
  Receive Date: 20150923
  Receipt Date: 20150923
  Transmission Date: 20151125
  Serious: No
  Sender: FDA-Public Use
  Company Number: US-BEH-2014047281

PATIENT
  Sex: Female

DRUGS (1)
  1. PRIVIGEN [Suspect]
     Active Substance: HUMAN IMMUNOGLOBULIN G

REACTIONS (10)
  - Pallor [Unknown]
  - Headache [Unknown]
  - Pyrexia [Unknown]
  - Cyanosis [Unknown]
  - Chills [Unknown]
  - Flushing [Unknown]
  - Heart rate increased [Unknown]
  - Dyskinesia [Unknown]
  - Rash [Unknown]
  - Pruritus [Unknown]
